FAERS Safety Report 9162199 (Version 1)
Quarter: 2013Q1

REPORT INFORMATION
  Report Type: Spontaneous
  Country: FR (occurrence: None)
  Receive Date: 20130220
  Receipt Date: 20130220
  Transmission Date: 20140127
  Serious: Yes (Other)
  Sender: FDA-Public Use
  Company Number: IPC201302-000045

PATIENT
  Age: 75 Year
  Sex: Female

DRUGS (1)
  1. FUROSEMIDE (FUROSEMIDE) [Suspect]
     Indication: ANXIETY

REACTIONS (1)
  - Hepatitis [None]
